FAERS Safety Report 8557760-8 (Version None)
Quarter: 2012Q3

REPORT INFORMATION
  Report Type: 
  Country: None (occurrence: None)
  Receive Date: 20120801
  Receipt Date: 20120728
  Transmission Date: 20120928
  Serious: Yes (Other)
  Sender: FDA-Public Use
  Company Number: CO-PFIZER INC-2012185733

PATIENT
  Age: 14 Year
  Sex: Female

DRUGS (3)
  1. FLUOXETINE [Concomitant]
     Indication: DEPRESSION
     Dosage: 20 MG, 1X/DAY
     Dates: start: 20120601
  2. GENOTROPIN [Suspect]
     Indication: GROWTH RETARDATION
     Dosage: 1.8 MG, 1X/DAY
     Route: 058
     Dates: start: 20090101
  3. ATEMPERATOR [Concomitant]
     Indication: CONVULSION
     Dosage: 200 MG, TWICE EVERY THIRD DAY
     Dates: start: 20090101

REACTIONS (3)
  - FIBROMATOSIS [None]
  - INJECTION SITE NODULE [None]
  - INJECTION SITE PAIN [None]
